FAERS Safety Report 7163896 (Version 2)
Quarter: 2013Q1

REPORT INFORMATION
  Report Type: Spontaneous
  Country: US (occurrence: US)
  Receive Date: 20091102
  Receipt Date: 20130213
  Transmission Date: 20140127
  Serious: Yes (Hospitalization)
  Sender: FDA-Public Use
  Company Number: US-BIOGENIDEC-2009BI034155

PATIENT
  Age: 40 None
  Sex: Male

DRUGS (2)
  1. AVONEX [Suspect]
     Indication: MULTIPLE SCLEROSIS
     Route: 030
     Dates: start: 20040911
  2. AVONEX [Suspect]
     Indication: MULTIPLE SCLEROSIS
     Route: 030
     Dates: start: 20040911

REACTIONS (8)
  - Spinal fusion surgery [Recovered/Resolved]
  - Pneumonia [Recovered/Resolved]
  - Hip arthroplasty [Unknown]
  - Hypoaesthesia [Recovered/Resolved]
  - Extensive swelling of vaccinated limb [Not Recovered/Not Resolved]
  - Abdominal pain upper [Recovered/Resolved]
  - Nightmare [Not Recovered/Not Resolved]
  - Headache [Recovered/Resolved]
